FAERS Safety Report 8348659-0 (Version None)
Quarter: 2012Q2

REPORT INFORMATION
  Report Type: 
  Country: None (occurrence: None)
  Receive Date: 20120510
  Receipt Date: 20120427
  Transmission Date: 20120825
  Serious: Yes (Hospitalization)
  Sender: FDA-Public Use
  Company Number: JP-ELI_LILLY_AND_COMPANY-JP201202005442

PATIENT
  Sex: Female
  Weight: 49 kg

DRUGS (8)
  1. RIMATIL [Concomitant]
     Dosage: 100 MG, BID
     Dates: start: 20020701
  2. PREDNISOLONE [Concomitant]
     Dosage: UNK
     Dates: start: 20020701
  3. PREDNISOLONE [Concomitant]
     Dosage: 5 MG, QD
     Dates: start: 20120209, end: 20120306
  4. PREDNISOLONE [Concomitant]
     Dosage: 3 MG, QD
     Dates: start: 20120327
  5. ALFAROL [Concomitant]
     Dosage: 0.25 UG, QD
     Dates: start: 20111119
  6. PREDNISOLONE [Concomitant]
     Dosage: 6 MG, QD
     Dates: end: 20120208
  7. FORTEO [Suspect]
     Indication: OSTEOPOROSIS
     Dosage: 20 UG, QD
     Route: 058
     Dates: start: 20111118
  8. PREDNISOLONE [Concomitant]
     Dosage: 4 MG, QD
     Dates: start: 20120307, end: 20120326

REACTIONS (1)
  - SPINAL COMPRESSION FRACTURE [None]
